FAERS Safety Report 6631833-9 (Version None)
Quarter: 2010Q1

REPORT INFORMATION
  Report Type: 
  Country: None (occurrence: None)
  Receive Date: 20100312
  Receipt Date: 20100304
  Transmission Date: 20100710
  Serious: Yes (Disabling)
  Sender: FDA-Public Use
  Company Number: DE-ROCHE-687284

PATIENT
  Sex: Female
  Weight: 109 kg

DRUGS (2)
  1. HERCEPTIN [Suspect]
     Dosage: TAKEN FOR YEARS.
     Route: 042
     Dates: start: 20010701
  2. BONDRONAT [Concomitant]
     Indication: BREAST CANCER
     Route: 048
     Dates: start: 20010701

REACTIONS (1)
  - PAPILLOEDEMA [None]
